FAERS Safety Report 6495875-9 (Version None)
Quarter: 2009Q4

REPORT INFORMATION
  Report Type: 
  Country: None (occurrence: None)
  Receive Date: 20091214
  Receipt Date: 20090824
  Transmission Date: 20100525
  Serious: No
  Sender: FDA-Public Use
  Company Number: US-BRISTOL-MYERS SQUIBB COMPANY-14752588

PATIENT
  Age: 16 Year
  Sex: Female
  Weight: 88 kg

DRUGS (7)
  1. ABILIFY [Suspect]
     Indication: BIPOLAR DISORDER
     Dosage: STARTED WITH 2MG THEN INCREASED TO 10MG
  2. DEPO-PROVERA [Concomitant]
  3. BENADRYL [Concomitant]
  4. ADVIL [Concomitant]
  5. TYLENOL (CAPLET) [Concomitant]
     Dosage: EXCEDRIN
  6. MIDOL [Concomitant]
  7. LAXATIVES [Concomitant]
     Dosage: LAXATIVES RH

REACTIONS (1)
  - HYPERHIDROSIS [None]
